FAERS Safety Report 18557175 (Version 6)
Quarter: 2021Q1

REPORT INFORMATION
  Report Type: Report from Study
  Country: CO (occurrence: CO)
  Receive Date: 20201129
  Receipt Date: 20210128
  Transmission Date: 20210419
  Serious: Yes (Hospitalization)
  Sender: FDA-Public Use
  Company Number: NVSC2020CO310045

PATIENT
  Sex: Male
  Weight: 81 kg

DRUGS (10)
  1. TAFINLAR [Suspect]
     Active Substance: DABRAFENIB MESYLATE
     Dosage: 150 MG (2 IN THE MORNING AND 2 IN THE AFTERNOON)
     Route: 048
     Dates: start: 202010
  2. LEVOTHYROXINE. [Concomitant]
     Active Substance: LEVOTHYROXINE
     Indication: THYROID CANCER
     Dosage: 150 MG, QD
     Route: 048
     Dates: start: 20200825
  3. CALCITRIOL. [Concomitant]
     Active Substance: CALCITRIOL
     Indication: THYROID CANCER
     Dosage: 0.25 UG, QD
     Route: 065
     Dates: start: 20200825
  4. CITRAGEL [Concomitant]
     Indication: THYROID CANCER
     Dosage: 1500 MG, QD
     Route: 065
     Dates: start: 20200825
  5. MEKINIST [Suspect]
     Active Substance: TRAMETINIB DIMETHYL SULFOXIDE
     Dosage: 2 MG, QD
     Route: 048
     Dates: start: 20210107
  6. TAMSULOSIN [Suspect]
     Active Substance: TAMSULOSIN
     Indication: PROSTATIC DISORDER
     Dosage: 0.4 MG, QD
     Route: 048
     Dates: start: 202011
  7. TAFINLAR [Suspect]
     Active Substance: DABRAFENIB MESYLATE
     Indication: MALIGNANT MELANOMA
     Dosage: 300 MG, QD
     Route: 048
  8. TAFINLAR [Suspect]
     Active Substance: DABRAFENIB MESYLATE
     Dosage: 75 MG, QD
     Route: 048
  9. MEKINIST [Suspect]
     Active Substance: TRAMETINIB DIMETHYL SULFOXIDE
     Indication: MALIGNANT MELANOMA
     Dosage: 2 MG, QD
     Route: 048
     Dates: start: 202010
  10. TAFINLAR [Suspect]
     Active Substance: DABRAFENIB MESYLATE
     Dosage: 150 MG, Q12H
     Route: 048
     Dates: start: 20210107

REACTIONS (13)
  - Product use in unapproved indication [Unknown]
  - Infection [Recovered/Resolved]
  - Recurrent cancer [Unknown]
  - Sensory disturbance [Recovering/Resolving]
  - Chills [Unknown]
  - Prostatitis [Not Recovered/Not Resolved]
  - Pyrexia [Unknown]
  - Illness [Unknown]
  - Orchitis noninfective [Recovered/Resolved]
  - Benign prostatic hyperplasia [Not Recovered/Not Resolved]
  - Urinary tract infection [Unknown]
  - Drug intolerance [Unknown]
  - Inappropriate schedule of product administration [Unknown]
